FAERS Safety Report 4613450-5 (Version None)
Quarter: 2005Q1

REPORT INFORMATION
  Report Type: 
  Country: None (occurrence: None)
  Receive Date: 20050316
  Receipt Date: 20050222
  Transmission Date: 20050727
  Serious: Yes (Death, Hospitalization)
  Sender: FDA-Public Use
  Company Number: 205234

PATIENT
  Age: 59 Year
  Sex: Female

DRUGS (8)
  1. AVONEX [Suspect]
     Indication: MULTIPLE SCLEROSIS
     Dosage: 30 UG; QW; IM
     Route: 030
     Dates: start: 20030528, end: 20030722
  2. SORTIS [Concomitant]
  3. FERRO-FOLGAMMA [Concomitant]
  4. DELIX [Concomitant]
  5. ENOXAPARIN [Concomitant]
  6. TETRAZEPAM [Concomitant]
  7. PROMETHAZIN [Concomitant]
  8. METOCLOPRAMIDE [Concomitant]

REACTIONS (11)
  - DIZZINESS [None]
  - FALL [None]
  - GENERAL PHYSICAL HEALTH DETERIORATION [None]
  - HUMERUS FRACTURE [None]
  - LUNG NEOPLASM MALIGNANT [None]
  - METASTASES TO BONE [None]
  - MULTIPLE SCLEROSIS RELAPSE [None]
  - OSTEOPOROSIS [None]
  - SCIATICA [None]
  - SUICIDAL IDEATION [None]
  - THORACIC VERTEBRAL FRACTURE [None]
